FAERS Safety Report 20056487 (Version 2)
Quarter: 2021Q4

REPORT INFORMATION
  Report Type: Spontaneous
  Country: US (occurrence: None)
  Receive Date: 20211111
  Receipt Date: 20211125
  Transmission Date: 20220303
  Serious: No
  Sender: FDA-Public Use
  Company Number: 2021A787316

PATIENT
  Sex: Male
  Weight: 117.9 kg

DRUGS (1)
  1. IMFINZI [Suspect]
     Active Substance: DURVALUMAB
     Indication: Lung neoplasm malignant
     Dosage: UNKNOWN
     Route: 058
     Dates: start: 20210930

REACTIONS (2)
  - Nipple disorder [Unknown]
  - Piloerection [Unknown]
